FAERS Safety Report 8202494-2 (Version None)
Quarter: 2012Q1

REPORT INFORMATION
  Report Type: 
  Country: None (occurrence: None)
  Receive Date: 20120312
  Receipt Date: 20120301
  Transmission Date: 20120608
  Serious: Yes (Other)
  Sender: FDA-Public Use
  Company Number: SE-JNJFOC-20120302047

PATIENT
  Sex: Female

DRUGS (2)
  1. IMURAN [Concomitant]
     Indication: PSORIATIC ARTHROPATHY
  2. REMICADE [Suspect]
     Indication: PSORIATIC ARTHROPATHY
     Route: 042

REACTIONS (2)
  - MYCOSIS FUNGOIDES [None]
  - PSORIASIS [None]
